FAERS Safety Report 9947416 (Version 1)
Quarter: 2014Q1

REPORT INFORMATION
  Report Type: Report from Study
  Country: US (occurrence: US)
  Receive Date: 20140303
  Receipt Date: 20140303
  Transmission Date: 20141002
  Serious: Yes (Hospitalization)
  Sender: FDA-Public Use
  Company Number: US-ABBVIE-13P-163-1058724-00

PATIENT
  Sex: Female
  Weight: 106.69 kg

DRUGS (9)
  1. HUMIRA [Suspect]
     Indication: CROHN^S DISEASE
     Dates: start: 2007
  2. HUMIRA [Suspect]
     Indication: COLITIS ULCERATIVE
     Dates: start: 201109
  3. HUMIRA [Suspect]
  4. GABAPENTIN [Suspect]
     Indication: SYSTEMIC LUPUS ERYTHEMATOSUS
  5. AMITRIPTYLINE [Suspect]
     Indication: SYSTEMIC LUPUS ERYTHEMATOSUS
  6. ASACOL HD [Concomitant]
     Indication: CROHN^S DISEASE
  7. ASACOL HD [Concomitant]
     Indication: COLITIS ULCERATIVE
  8. SAVELLA [Concomitant]
     Indication: FIBROMYALGIA
  9. OMEPRAZOLE [Concomitant]
     Indication: GASTROOESOPHAGEAL REFLUX DISEASE

REACTIONS (8)
  - Crohn^s disease [Recovered/Resolved]
  - Haemoglobin decreased [Recovered/Resolved]
  - Haematocrit decreased [Recovered/Resolved]
  - Dehydration [Recovered/Resolved]
  - Condition aggravated [Recovered/Resolved]
  - Somnolence [Not Recovered/Not Resolved]
  - Activities of daily living impaired [Not Recovered/Not Resolved]
  - Pain [Not Recovered/Not Resolved]
